FAERS Safety Report 21887121 (Version 1)
Quarter: 2023Q1

REPORT INFORMATION
  Report Type: Spontaneous
  Country: GB (occurrence: GB)
  Receive Date: 20230119
  Receipt Date: 20230119
  Transmission Date: 20230417
  Serious: Yes (Other)
  Sender: FDA-Public Use
  Company Number: None

PATIENT
  Age: 70 Year
  Sex: Male
  Weight: 79 kg

DRUGS (9)
  1. LAGEVRIO [Suspect]
     Active Substance: MOLNUPIRAVIR
     Indication: COVID-19
     Dosage: 800MG X 2
     Dates: start: 20230108
  2. ASPIRIN [Concomitant]
     Active Substance: ASPIRIN
  3. ALENDRONIC ACID [Concomitant]
     Active Substance: ALENDRONIC ACID
  4. FOLIC ACID [Concomitant]
     Active Substance: FOLIC ACID
  5. INFLIXIMAB [Concomitant]
     Active Substance: INFLIXIMAB
     Indication: Polychondritis
  6. LANSOPRAZOLE [Concomitant]
     Active Substance: LANSOPRAZOLE
     Indication: Gastrooesophageal reflux disease
  7. PREDNISOLONE [Concomitant]
     Active Substance: PREDNISOLONE
     Indication: Polychondritis
  8. SIMVASTATIN [Concomitant]
     Active Substance: SIMVASTATIN
  9. SULFASALAZINE [Concomitant]
     Active Substance: SULFASALAZINE
     Indication: Polychondritis

REACTIONS (3)
  - Wheezing [Not Recovered/Not Resolved]
  - Rash [Unknown]
  - Catarrh [Unknown]

NARRATIVE: CASE EVENT DATE: 20230110
